FAERS Safety Report 23197979 (Version 2)
Quarter: 2023Q4

REPORT INFORMATION
  Report Type: Spontaneous
  Country: US (occurrence: US)
  Receive Date: 20231117
  Receipt Date: 20231220
  Transmission Date: 20240110
  Serious: No
  Sender: FDA-Public Use
  Company Number: US-Blueprint Medicines Corporation-SP-US-2023-001815

PATIENT

DRUGS (2)
  1. AYVAKIT [Suspect]
     Active Substance: AVAPRITINIB
     Indication: Indolent systemic mastocytosis
     Route: 065
  2. AYVAKIT [Suspect]
     Active Substance: AVAPRITINIB
     Indication: Mast cell activation syndrome

REACTIONS (8)
  - Paraesthesia [Unknown]
  - Hypoaesthesia [Unknown]
  - Trigger points [Unknown]
  - Neuropathy peripheral [Unknown]
  - Skin irritation [Unknown]
  - Limb discomfort [Unknown]
  - Drug ineffective [Unknown]
  - Unintentional use for unapproved indication [Unknown]
